FAERS Safety Report 15337360 (Version 1)
Quarter: 2018Q3

REPORT INFORMATION
  Report Type: Spontaneous
  Country: US (occurrence: US)
  Receive Date: 20180831
  Receipt Date: 20180831
  Transmission Date: 20181010
  Serious: Yes (Hospitalization)
  Sender: FDA-Public Use
  Company Number: US-BEH-2018094346

PATIENT
  Age: 68 Year
  Sex: Female

DRUGS (2)
  1. PRIVIGEN [Suspect]
     Active Substance: HUMAN IMMUNOGLOBULIN G
     Indication: SELECTIVE IGG SUBCLASS DEFICIENCY
     Dosage: 30 MG, UNK
     Route: 065
     Dates: start: 2004
  2. PRIVIGEN [Suspect]
     Active Substance: HUMAN IMMUNOGLOBULIN G
     Dosage: 30 UNK, UNK
     Route: 065
     Dates: start: 20180823

REACTIONS (2)
  - Swollen tongue [Unknown]
  - Vomiting [Unknown]

NARRATIVE: CASE EVENT DATE: 20180823
